FAERS Safety Report 23750969 (Version 2)
Quarter: 2025Q4

REPORT INFORMATION
  Report Type: Report from Study
  Country: CA (occurrence: CA)
  Receive Date: 20240417
  Receipt Date: 20251120
  Transmission Date: 20260117
  Serious: Yes (Other)
  Sender: TAKEDA
  Company Number: CA-TAKEDA-2018TUS027010

PATIENT
  Age: 29 Year
  Sex: Male

DRUGS (6)
  1. VEDOLIZUMAB [Suspect]
     Active Substance: VEDOLIZUMAB
     Indication: Colitis ulcerative
     Dosage: 300 MILLIGRAM
  2. VEDOLIZUMAB [Suspect]
     Active Substance: VEDOLIZUMAB
     Dosage: 300 MILLIGRAM
  3. VEDOLIZUMAB [Suspect]
     Active Substance: VEDOLIZUMAB
     Dosage: 300 MILLIGRAM
  4. VEDOLIZUMAB [Suspect]
     Active Substance: VEDOLIZUMAB
     Dosage: 300 MILLIGRAM, Q6WEEKS
     Dates: start: 20240626
  5. Salofalk [Concomitant]
     Dosage: UNK UNK, BID
     Dates: start: 20050101
  6. INVOKANA [Concomitant]
     Active Substance: CANAGLIFLOZIN
     Dosage: 300 MILLIGRAM, QD

REACTIONS (9)
  - Colitis ulcerative [Unknown]
  - Gastritis [Recovered/Resolved with Sequelae]
  - Food poisoning [Unknown]
  - Diarrhoea [Unknown]
  - Large intestine polyp [Unknown]
  - Therapeutic reaction time decreased [Unknown]
  - Vomiting [Unknown]
  - Haemorrhoids [Unknown]
  - Nausea [Unknown]

NARRATIVE: CASE EVENT DATE: 20251029
